FAERS Safety Report 19196661 (Version 4)
Quarter: 2022Q4

REPORT INFORMATION
  Report Type: Spontaneous
  Country: US (occurrence: US)
  Receive Date: 20210429
  Receipt Date: 20221214
  Transmission Date: 20230113
  Serious: Yes (Other)
  Sender: FDA-Public Use
  Company Number: US-PFIZER INC-2021472689

PATIENT
  Age: 50 Year
  Sex: Male

DRUGS (3)
  1. VENLAFAXINE HCL [Suspect]
     Active Substance: VENLAFAXINE HYDROCHLORIDE
     Dosage: MASSIVE INGESTION
  2. DILTIAZEM HYDROCHLORIDE [Suspect]
     Active Substance: DILTIAZEM HYDROCHLORIDE
     Dosage: MASSIVE INGESTION
  3. BUPROPION [Suspect]
     Active Substance: BUPROPION
     Dosage: MASSIVE INGESTION

REACTIONS (2)
  - Overdose [Recovering/Resolving]
  - Cardiogenic shock [Recovering/Resolving]
